FAERS Safety Report 5162160-7 (Version None)
Quarter: 2006Q4

REPORT INFORMATION
  Report Type: 
  Country: None (occurrence: None)
  Receive Date: 20061121
  Receipt Date: 20061108
  Transmission Date: 20070319
  Serious: Yes (Other)
  Sender: FDA-Public Use
  Company Number: GBWYE469108NOV06

PATIENT

DRUGS (1)
  1. EFEXOR XL (VENLAFAXINE HYDROCHLORIDE, UNSPEC, 0) [Suspect]
     Dosage: 75 MG 1X PER 1 DAY

REACTIONS (2)
  - BLOOD PRESSURE INCREASED [None]
  - DRUG WITHDRAWAL SYNDROME [None]
